FAERS Safety Report 9043761 (Version 1)
Quarter: 2013Q1

REPORT INFORMATION
  Report Type: Report from Study
  Country: US (occurrence: US)
  Receive Date: 20130129
  Receipt Date: 20130129
  Transmission Date: 20140127
  Serious: No
  Sender: FDA-Public Use
  Company Number: US-ABBOTT-12P-163-0911905-00

PATIENT
  Age: 42 Year
  Sex: Female

DRUGS (7)
  1. HUMIRA 40 MG/0.8 ML PEN [Suspect]
     Indication: PSORIASIS
     Dates: start: 20110824
  2. VESICARE [Concomitant]
     Indication: URINARY INCONTINENCE
     Dosage: DAILY
  3. FLEXERIL [Concomitant]
     Indication: MUSCLE SPASMS
  4. OMEPRAZOLE [Concomitant]
     Indication: GASTROOESOPHAGEAL REFLUX DISEASE
  5. ZYRTEC [Concomitant]
     Indication: SEASONAL ALLERGY
     Dosage: DAILY
  6. SUDAFED [Concomitant]
     Indication: SEASONAL ALLERGY
     Dosage: DAILY
  7. PHENAZOPYRIDINE [Concomitant]
     Indication: AUTOMATIC BLADDER
     Dosage: 95MG X 2 TABLETS= 190MG IN THE EVENING

REACTIONS (3)
  - Throat irritation [Recovering/Resolving]
  - Sinus congestion [Recovering/Resolving]
  - Productive cough [Recovering/Resolving]
